FAERS Safety Report 7321184-1 (Version None)
Quarter: 2011Q1

REPORT INFORMATION
  Report Type: 
  Country: None (occurrence: None)
  Receive Date: 20110228
  Receipt Date: 20110223
  Transmission Date: 20110831
  Serious: Yes (Disabling, Other)
  Sender: FDA-Public Use
  Company Number: US-PFIZER INC-2005093551

PATIENT
  Sex: Male

DRUGS (2)
  1. PRAVACHOL [Suspect]
     Dosage: UNK
     Dates: start: 20010607
  2. LIPITOR [Suspect]
     Indication: BLOOD CHOLESTEROL INCREASED
     Dosage: 40 MG DAILY
     Dates: start: 20020401, end: 20031001

REACTIONS (12)
  - CHRONIC INFLAMMATORY DEMYELINATING POLYRADICULONEUROPATHY [None]
  - CONFUSIONAL STATE [None]
  - COGNITIVE DISORDER [None]
  - AMNESIA [None]
  - FATIGUE [None]
  - ANGER [None]
  - RADICULOPATHY [None]
  - ASTHENIA [None]
  - NEUROPATHY PERIPHERAL [None]
  - DEPRESSION [None]
  - PAIN IN EXTREMITY [None]
  - BACK PAIN [None]
